FAERS Safety Report 8852244 (Version 3)
Quarter: 2013Q4

REPORT INFORMATION
  Report Type: Spontaneous
  Country: US (occurrence: None)
  Receive Date: 20120426
  Receipt Date: 20131226
  Transmission Date: 20140711
  Serious: Yes (Other)
  Sender: FDA-Public Use
  Company Number: PHEH2011US011438

PATIENT
  Age: 31 Year
  Sex: Female
  Weight: 54.4 kg

DRUGS (1)
  1. GILENYA [Suspect]
     Indication: RELAPSING-REMITTING MULTIPLE SCLEROSIS
     Route: 048
     Dates: start: 20111107

REACTIONS (9)
  - Speech disorder [None]
  - Gait disturbance [None]
  - Chest discomfort [None]
  - Dyspepsia [None]
  - Irritability [None]
  - Tinnitus [None]
  - Dyspnoea [None]
  - Blood pressure increased [None]
  - Headache [None]
